FAERS Safety Report 8256067-6 (Version None)
Quarter: 2012Q2

REPORT INFORMATION
  Report Type: 
  Country: None (occurrence: None)
  Receive Date: 20120403
  Receipt Date: 20120328
  Transmission Date: 20120825
  Serious: Yes (Other)
  Sender: FDA-Public Use
  Company Number: US-PFIZER INC-2012080463

PATIENT
  Sex: Female

DRUGS (2)
  1. GEODON [Suspect]
     Dosage: 80 MG, 2X/DAY (1 PO BID)
     Route: 048
  2. LANTUS [Suspect]
     Dosage: (40 UNITS PENS BID)

REACTIONS (2)
  - DIABETES MELLITUS [None]
  - BIPOLAR DISORDER [None]
